FAERS Safety Report 5490002-9 (Version None)
Quarter: 2007Q4

REPORT INFORMATION
  Report Type: 
  Country: None (occurrence: None)
  Receive Date: 20071018
  Receipt Date: 20071010
  Transmission Date: 20080405
  Serious: Yes (Death)
  Sender: FDA-Public Use
  Company Number: US-GENENTECH-247191

PATIENT
  Sex: Female
  Weight: 78 kg

DRUGS (16)
  1. BEVACIZUMAB [Suspect]
     Indication: GLIOBLASTOMA MULTIFORME
     Dosage: 793 UNK, Q2W
     Route: 042
     Dates: start: 20070112
  2. IRINOTECAN HCL [Suspect]
     Indication: GLIOBLASTOMA MULTIFORME
     Dosage: 225 UNK, Q2W
     Route: 042
     Dates: start: 20070813
  3. PREDNISONE [Concomitant]
     Indication: ADRENAL INSUFFICIENCY
     Dosage: 5 MG, QD
     Dates: start: 20070618
  4. AVANDIA [Concomitant]
     Indication: DIABETES MELLITUS
     Dosage: 4 MG, QD
     Dates: start: 20060101
  5. LISINOPRIL [Concomitant]
     Indication: HYPERTENSION
     Dosage: 20 MG, QD
     Dates: start: 20060101
  6. NIFEDIPINE [Concomitant]
     Indication: HYPERTENSION
     Dosage: 30 MG, UNK
     Dates: start: 20060101
  7. PREVACID [Concomitant]
     Indication: PROPHYLAXIS
     Dosage: 30 MG, QD
     Dates: start: 20060101
  8. SINGULAIR [Concomitant]
     Indication: RHINITIS ALLERGIC
     Dosage: 10 MG, QD
     Dates: start: 20060101
  9. ZYRTEC [Concomitant]
     Indication: RHINITIS ALLERGIC
     Dosage: 10 MG, QHS
     Dates: start: 20060101
  10. LIPITOR [Concomitant]
     Indication: HYPERLIPIDAEMIA
     Dosage: 40 MG/HR, QD
     Dates: start: 20060101
  11. NASACORT [Concomitant]
     Indication: RHINITIS ALLERGIC
     Dosage: UNK, PRN
     Dates: start: 20060101
  12. MULTI-VITAMIN [Concomitant]
     Indication: MEDICAL DIET
     Dosage: UNK, QD
     Dates: start: 20070111
  13. ATIVAN [Concomitant]
     Indication: PANIC ATTACK
     Dosage: UNK, PRN
     Dates: start: 20070409
  14. PAXIL [Concomitant]
     Indication: DEPRESSION
     Dosage: 10 MG, QD
     Dates: start: 20070226
  15. PAXIL [Concomitant]
     Indication: ANXIETY
  16. KEPPRA [Concomitant]
     Indication: CONVULSION
     Dosage: 500 MG, BID
     Dates: start: 20070927

REACTIONS (1)
  - GENERAL PHYSICAL HEALTH DETERIORATION [None]
